FAERS Safety Report 7018533-0 (Version None)
Quarter: 2010Q3

REPORT INFORMATION
  Report Type: 
  Country: None (occurrence: None)
  Receive Date: 20100928
  Receipt Date: 20100921
  Transmission Date: 20110219
  Serious: Yes (Other)
  Sender: FDA-Public Use
  Company Number: US-AMGEN-KDL439732

PATIENT
  Sex: Female

DRUGS (2)
  1. ENBREL [Suspect]
     Indication: PRODUCT USED FOR UNKNOWN INDICATION
     Dates: start: 20071001, end: 20100701
  2. TAMOXIFEN CITRATE [Suspect]
     Dates: start: 20060801, end: 20090701

REACTIONS (4)
  - EOSINOPHIL COUNT INCREASED [None]
  - MONOCYTE COUNT INCREASED [None]
  - THROMBOSIS [None]
  - WHITE BLOOD CELL COUNT DECREASED [None]
